FAERS Safety Report 5383209-2 (Version None)
Quarter: 2007Q3

REPORT INFORMATION
  Report Type: 
  Country: None (occurrence: None)
  Receive Date: 20070705
  Receipt Date: 20070626
  Transmission Date: 20080115
  Serious: Yes (Death)
  Sender: FDA-Public Use
  Company Number: 2007JP002390

PATIENT
  Age: 89 Year
  Sex: Female
  Weight: 48 kg

DRUGS (4)
  1. VESICARE [Suspect]
     Indication: HYPERTONIC BLADDER
     Dosage: 5 MG, UID/QD, ORAL
     Route: 048
     Dates: start: 20070125, end: 20070320
  2. ARICEPT (DONEPEZIL HYDROCHLORIDE) TABLET, 5 MG [Concomitant]
  3. DIOVAN [Concomitant]
  4. NITOROL (ISOSORBIDE DINITRATE) SLOW RELEASE CAPSULES, 20 MG [Concomitant]

REACTIONS (4)
  - FALL [None]
  - LOSS OF CONSCIOUSNESS [None]
  - RESPIRATORY ARREST [None]
  - SUDDEN DEATH [None]
